FAERS Safety Report 17974093 (Version 1)
Quarter: 2020Q3

REPORT INFORMATION
  Report Type: Spontaneous
  Country: US (occurrence: US)
  Receive Date: 20200702
  Receipt Date: 20200702
  Transmission Date: 20201103
  Serious: No
  Sender: FDA-Public Use
  Company Number: None

PATIENT
  Age: 22 Year
  Sex: Female
  Weight: 56.25 kg

DRUGS (3)
  1. ETONOGESTREL/ETHINYL ESTRADIOL [Suspect]
     Active Substance: ETHINYL ESTRADIOL\ETONOGESTREL
     Indication: CONTRACEPTION
     Dosage: ?          QUANTITY:1 RING;OTHER FREQUENCY:MONTHLY;?
     Route: 067
     Dates: start: 20200207, end: 20200702
  2. MELATONIN [Concomitant]
     Active Substance: MELATONIN
  3. GENERIC NUVARING [Concomitant]
     Active Substance: ETHINYL ESTRADIOL\ETONOGESTREL

REACTIONS (5)
  - Vulvovaginal rash [None]
  - Muscle spasms [None]
  - Vulvovaginal pruritus [None]
  - Menstruation irregular [None]
  - Vaginal haemorrhage [None]

NARRATIVE: CASE EVENT DATE: 20200702
